FAERS Safety Report 15132718 (Version 1)
Quarter: 2018Q3

REPORT INFORMATION
  Report Type: Spontaneous
  Country: AU (occurrence: AU)
  Receive Date: 20180712
  Receipt Date: 20180712
  Transmission Date: 20181010
  Serious: Yes (Hospitalization)
  Sender: FDA-Public Use
  Company Number: AU-TEVA-2018-AU-921986

PATIENT
  Age: 59 Year
  Sex: Female

DRUGS (4)
  1. QUETIAPINE XR [Suspect]
     Active Substance: QUETIAPINE
     Indication: PSYCHOTIC DISORDER
     Dosage: 200 MILLIGRAM DAILY;
     Route: 065
  2. RISPERIDONE. [Suspect]
     Active Substance: RISPERIDONE
     Indication: PSYCHOTIC DISORDER
     Dosage: 2 MILLIGRAM DAILY;
     Route: 065
  3. QUETIAPINE XR [Interacting]
     Active Substance: QUETIAPINE
     Dosage: GRADUALLY INCREASED TO 600 MG/DAY DOSE
     Route: 065
  4. SERTRALINE [Interacting]
     Active Substance: SERTRALINE HYDROCHLORIDE
     Indication: DEPRESSION
     Dosage: TITRATED UP TO 100MG/DAY
     Route: 065

REACTIONS (4)
  - Parkinsonism [Recovered/Resolved]
  - Drug interaction [Recovered/Resolved]
  - Torticollis [Recovered/Resolved]
  - Catatonia [Recovered/Resolved]
